FAERS Safety Report 7389221-6 (Version None)
Quarter: 2011Q2

REPORT INFORMATION
  Report Type: 
  Country: None (occurrence: None)
  Receive Date: 20110401
  Receipt Date: 20110321
  Transmission Date: 20111010
  Serious: Yes (Other)
  Sender: FDA-Public Use
  Company Number: US-SANOFI-AVENTIS-2011SA013158

PATIENT
  Age: 85 Year
  Sex: Female
  Weight: 116 kg

DRUGS (6)
  1. ZIAC [Concomitant]
     Indication: HYPERTENSION
  2. ACETAMINOPHEN [Concomitant]
     Indication: OSTEOARTHRITIS
  3. BENAZEPRIL HYDROCHLORIDE [Concomitant]
     Indication: HYPERTENSION
  4. ALCOHOL [Concomitant]
  5. NORVASC [Concomitant]
     Indication: HYPERTENSION
  6. MULTAQ [Suspect]
     Route: 048
     Dates: start: 20110110, end: 20110228

REACTIONS (5)
  - MIXED LIVER INJURY [None]
  - ASPARTATE AMINOTRANSFERASE INCREASED [None]
  - BLOOD ALKALINE PHOSPHATASE INCREASED [None]
  - ALANINE AMINOTRANSFERASE INCREASED [None]
  - BLOOD BILIRUBIN INCREASED [None]
